FAERS Safety Report 13284976 (Version 1)
Quarter: 2017Q1

REPORT INFORMATION
  Report Type: Spontaneous
  Country: US (occurrence: US)
  Receive Date: 20170301
  Receipt Date: 20170301
  Transmission Date: 20170428
  Serious: Yes (Other)
  Sender: FDA-Public Use
  Company Number: None

PATIENT
  Age: 33 Year
  Sex: Female

DRUGS (1)
  1. CRINONE [Suspect]
     Active Substance: PROGESTERONE
     Indication: PREMATURE LABOUR
     Route: 067
     Dates: start: 20170131, end: 20170301

REACTIONS (2)
  - Blood glucose increased [None]
  - Heart rate increased [None]

NARRATIVE: CASE EVENT DATE: 20170301
